FAERS Safety Report 10889960 (Version 3)
Quarter: 2015Q2

REPORT INFORMATION
  Report Type: Spontaneous
  Country: US (occurrence: US)
  Receive Date: 20150305
  Receipt Date: 20150506
  Transmission Date: 20150821
  Serious: No
  Sender: FDA-Public Use
  Company Number: US-009507513-1503USA000805

PATIENT
  Age: 50 Year
  Sex: Female

DRUGS (5)
  1. DULERA [Suspect]
     Active Substance: FORMOTEROL FUMARATE DIHYDRATE\MOMETASONE FUROATE
     Indication: ASTHMA
     Dosage: TWO PUFFS IN THE MORNING AND TWO PUFFS BEFORE BEDTIME
     Route: 055
     Dates: start: 201303, end: 20150219
  2. IPRATROPIUM BROMIDE. [Concomitant]
     Active Substance: IPRATROPIUM BROMIDE
     Indication: PRODUCT USED FOR UNKNOWN INDICATION
  3. ALBUTEROL SULFATE. [Concomitant]
     Active Substance: ALBUTEROL SULFATE
     Indication: PRODUCT USED FOR UNKNOWN INDICATION
  4. PROAIR (FLUTICASONE PROPIONATE) [Concomitant]
     Active Substance: FLUTICASONE PROPIONATE
     Indication: ASTHMA
  5. DULERA [Suspect]
     Active Substance: FORMOTEROL FUMARATE DIHYDRATE\MOMETASONE FUROATE
     Dosage: TWO PUFFS IN THE MORNING AND TWO PUFFS BEFORE BEDTIME
     Route: 055
     Dates: start: 201502

REACTIONS (3)
  - Product quality issue [Recovering/Resolving]
  - Chest discomfort [Recovering/Resolving]
  - Product physical issue [Unknown]

NARRATIVE: CASE EVENT DATE: 2015
